FAERS Safety Report 24946651 (Version 2)
Quarter: 2025Q1

REPORT INFORMATION
  Report Type: Spontaneous
  Country: US (occurrence: US)
  Receive Date: 20250210
  Receipt Date: 20250228
  Transmission Date: 20250408
  Serious: Yes (Hospitalization, Other)
  Sender: DR REDDYS
  Company Number: None

PATIENT
  Age: 54 Year
  Sex: Female

DRUGS (4)
  1. CYCLOSPORINE [Suspect]
     Active Substance: CYCLOSPORINE
     Indication: Immunosuppressant drug therapy
  2. TACROLIMUS [Suspect]
     Active Substance: TACROLIMUS
     Indication: Immunosuppressant drug therapy
  3. MYCOPHENOLIC ACID [Suspect]
     Active Substance: MYCOPHENOLIC ACID
     Indication: Immunosuppressant drug therapy
  4. BASILIXIMAB [Suspect]
     Active Substance: BASILIXIMAB
     Indication: Immunosuppressant drug therapy

REACTIONS (7)
  - Post transplant lymphoproliferative disorder [Recovered/Resolved]
  - Abscess [Recovered/Resolved]
  - Tremor [Unknown]
  - Paraesthesia [Unknown]
  - Hepatic artery stenosis [Recovered/Resolved]
  - Biliary obstruction [Recovered/Resolved]
  - Biloma [Recovered/Resolved]
